FAERS Safety Report 5041074-7 (Version None)
Quarter: 2006Q2

REPORT INFORMATION
  Report Type: 
  Country: None (occurrence: None)
  Receive Date: 20060626
  Receipt Date: 20060613
  Transmission Date: 20061013
  Serious: Yes (Hospitalization, Other)
  Sender: FDA-Public Use
  Company Number: 430063K06USA

PATIENT
  Age: 56 Year
  Sex: Female

DRUGS (2)
  1. NOVANTRONE [Suspect]
     Indication: MULTIPLE SCLEROSIS
     Dosage: 12 MG/M2, INTRAVENOUS
     Route: 042
     Dates: start: 20030717
  2. COPAXONE [Suspect]
     Dosage: 1 IN 2 DAYS
     Dates: start: 20060217, end: 20060316

REACTIONS (8)
  - ATRIAL FIBRILLATION [None]
  - ATRIAL PRESSURE INCREASED [None]
  - CARDIAC DISORDER [None]
  - CARDIAC FAILURE CONGESTIVE [None]
  - CARDIOMYOPATHY [None]
  - MITRAL VALVE INCOMPETENCE [None]
  - PLEURAL EFFUSION [None]
  - PULMONARY HYPERTENSION [None]
